FAERS Safety Report 9272417 (Version 1)
Quarter: 2013Q2

REPORT INFORMATION
  Report Type: Spontaneous
  Country: US (occurrence: US)
  Receive Date: 20130506
  Receipt Date: 20130506
  Transmission Date: 20140414
  Serious: No
  Sender: FDA-Public Use
  Company Number: US-ASTRAZENECA-2012SE90381

PATIENT
  Age: 92 Year
  Sex: Male

DRUGS (4)
  1. PRILOSEC OTC [Suspect]
     Indication: UPPER-AIRWAY COUGH SYNDROME
     Dosage: 1 TABLET TWO TIMES A DAY FOR TWO DAYS
     Route: 048
     Dates: start: 20121101
  2. TORASEMIDE [Concomitant]
  3. WARFIN [Concomitant]
  4. DIGITALIS [Concomitant]

REACTIONS (2)
  - Diarrhoea [Unknown]
  - Drug administration error [Unknown]
